FAERS Safety Report 21652590 (Version 1)
Quarter: 2022Q4

REPORT INFORMATION
  Report Type: Spontaneous
  Country: JP (occurrence: JP)
  Receive Date: 20221128
  Receipt Date: 20221128
  Transmission Date: 20230112
  Serious: Yes (Hospitalization)
  Sender: FDA-Public Use
  Company Number: JP-BAYER-2022P022365

PATIENT
  Age: 18 Year
  Sex: Female

DRUGS (7)
  1. NEXAVAR [Suspect]
     Active Substance: SORAFENIB
     Indication: Osteosarcoma
     Dosage: DAILY DOSE 800 MG
  2. NEXAVAR [Suspect]
     Active Substance: SORAFENIB
     Indication: Metastases to lung
  3. EVEROLIMUS [Suspect]
     Active Substance: EVEROLIMUS
     Indication: Osteosarcoma
     Dosage: DAILY DOSE 5 MG
  4. EVEROLIMUS [Suspect]
     Active Substance: EVEROLIMUS
     Indication: Metastases to lung
  5. METHOTREXATE [Concomitant]
     Active Substance: METHOTREXATE
  6. ADRIAMYCIN [Concomitant]
     Active Substance: DOXORUBICIN HYDROCHLORIDE
  7. CISPLATIN [Concomitant]
     Active Substance: CISPLATIN

REACTIONS (3)
  - Bronchial fistula [Recovered/Resolved]
  - Tumour cavitation [Recovered/Resolved]
  - Off label use [None]
